FAERS Safety Report 13260509 (Version 1)
Quarter: 2017Q1

REPORT INFORMATION
  Report Type: Spontaneous
  Country: US (occurrence: US)
  Receive Date: 20170221
  Receipt Date: 20170221
  Transmission Date: 20170428
  Serious: No
  Sender: FDA-Public Use
  Company Number: None

PATIENT
  Sex: Female

DRUGS (10)
  1. LISINOPRIL. [Concomitant]
     Active Substance: LISINOPRIL
  2. PRADAXA [Concomitant]
     Active Substance: DABIGATRAN ETEXILATE MESYLATE
  3. PROLIA [Suspect]
     Active Substance: DENOSUMAB
     Indication: OSTEOPOROSIS
     Dosage: 60MG 6 MONTHS SUBCUTANEOUSLY
     Route: 058
     Dates: start: 20160901
  4. CALCIUM [Concomitant]
     Active Substance: CALCIUM
  5. FISH OIL [Concomitant]
     Active Substance: FISH OIL
  6. FOLIC ACID. [Concomitant]
     Active Substance: FOLIC ACID
  7. SIMVASTATIN. [Concomitant]
     Active Substance: SIMVASTATIN
  8. GLYBURIDE. [Concomitant]
     Active Substance: GLYBURIDE
  9. VITAMIN D3 [Concomitant]
     Active Substance: CHOLECALCIFEROL
  10. BRIMODINE [Concomitant]

REACTIONS (1)
  - Ear neoplasm [None]
